FAERS Safety Report 8425075 (Version 5)
Quarter: 2013Q2

REPORT INFORMATION
  Report Type: Spontaneous
  Country: FR (occurrence: FR)
  Receive Date: 20120224
  Receipt Date: 20130402
  Transmission Date: 20140414
  Serious: Yes (Hospitalization)
  Sender: FDA-Public Use
  Company Number: FR-GLAXOSMITHKLINE-B0783004A

PATIENT
  Age: 84 Year
  Sex: Female
  Weight: 50 kg

DRUGS (12)
  1. LAMICTAL [Suspect]
     Indication: BIPOLAR DISORDER
     Route: 065
     Dates: start: 20100127, end: 20100223
  2. EPITOMAX [Suspect]
     Route: 065
     Dates: start: 200910
  3. ROCEPHINE [Suspect]
     Indication: URINARY TRACT INFECTION BACTERIAL
     Route: 058
     Dates: start: 20100121, end: 20100128
  4. MODOPAR [Concomitant]
     Indication: PARKINSON^S DISEASE
     Route: 065
  5. DEROXAT [Concomitant]
     Dosage: 30MG PER DAY
     Route: 065
     Dates: start: 200910
  6. RIFAMYCINE [Concomitant]
     Indication: CONJUNCTIVITIS BACTERIAL
     Route: 065
     Dates: start: 20100120
  7. LEVOTHYROX [Concomitant]
     Dosage: 100MCG PER DAY
  8. FORLAX [Concomitant]
  9. XALATAN [Concomitant]
  10. PROCTOLOG [Concomitant]
  11. DIPRIVAN [Concomitant]
     Indication: ANAESTHESIA
     Route: 065
     Dates: start: 20091214
  12. CELOCURINE [Concomitant]
     Indication: ANAESTHESIA
     Route: 065
     Dates: start: 20091214

REACTIONS (18)
  - Drug reaction with eosinophilia and systemic symptoms [Recovered/Resolved with Sequelae]
  - Cholestasis [Recovered/Resolved]
  - Hepatocellular injury [Recovered/Resolved]
  - Rash pruritic [Recovered/Resolved]
  - Rash maculo-papular [Recovered/Resolved]
  - Eosinophilia [Recovered/Resolved]
  - Purpura [Recovered/Resolved]
  - Purulent discharge [Recovered/Resolved]
  - Corneal abscess [Recovered/Resolved with Sequelae]
  - Blepharitis [Unknown]
  - Ulcerative keratitis [Recovering/Resolving]
  - Corneal opacity [Not Recovered/Not Resolved]
  - Blindness unilateral [Not Recovered/Not Resolved]
  - Fundoscopy abnormal [Unknown]
  - Enophthalmos [Not Recovered/Not Resolved]
  - Visual field defect [Not Recovered/Not Resolved]
  - Physical disability [Not Recovered/Not Resolved]
  - Pruritus [Recovered/Resolved]
